FAERS Safety Report 25561489 (Version 2)
Quarter: 2025Q3

REPORT INFORMATION
  Report Type: Report from Study
  Country: US (occurrence: US)
  Receive Date: 20250716
  Receipt Date: 20250812
  Transmission Date: 20251021
  Serious: No
  Sender: MALLINCKRODT
  Company Number: US-MALLINCKRODT-MNK202504268

PATIENT
  Age: 69 Year
  Sex: Female

DRUGS (2)
  1. CORTICOTROPIN [Suspect]
     Active Substance: CORTICOTROPIN
     Indication: Uveitis
  2. GAMMAPLEX [Concomitant]
     Active Substance: HUMAN IMMUNOGLOBULIN G

REACTIONS (2)
  - Pain [Unknown]
  - Dysstasia [Recovering/Resolving]

NARRATIVE: CASE EVENT DATE: 20250708
